FAERS Safety Report 6186963-5 (Version None)
Quarter: 2009Q2

REPORT INFORMATION
  Report Type: 
  Country: None (occurrence: None)
  Receive Date: 20090512
  Receipt Date: 20090505
  Transmission Date: 20091009
  Serious: Yes (Death, Other)
  Sender: FDA-Public Use
  Company Number: US-ELI_LILLY_AND_COMPANY-US200905000835

PATIENT
  Sex: Female

DRUGS (2)
  1. FORTEO [Suspect]
     Dosage: 20 UG, DAILY (1/D)
     Dates: start: 20090102
  2. FOSAMAX [Concomitant]
     Dosage: UNK, UNK
     Dates: start: 20000406, end: 20090101

REACTIONS (2)
  - DEATH [None]
  - NEOPLASM MALIGNANT [None]
